FAERS Safety Report 9445506 (Version 1)
Quarter: 2013Q3

REPORT INFORMATION
  Report Type: Spontaneous
  Country: US (occurrence: US)
  Receive Date: 20130807
  Receipt Date: 20130807
  Transmission Date: 20140515
  Serious: No
  Sender: FDA-Public Use
  Company Number: US-009507513-1308USA000438

PATIENT
  Sex: Female
  Weight: 58.96 kg

DRUGS (3)
  1. MIRALAX [Suspect]
     Indication: BOWEL MOVEMENT IRREGULARITY
     Dosage: 17 G, QD
     Route: 048
     Dates: start: 2010, end: 2013
  2. MIRALAX [Suspect]
     Indication: FAECES HARD
  3. MIRALAX [Suspect]
     Indication: MEDICAL OBSERVATION

REACTIONS (2)
  - Frequent bowel movements [Recovered/Resolved]
  - Incorrect drug administration duration [Unknown]
